FAERS Safety Report 23930894 (Version 2)
Quarter: 2024Q3

REPORT INFORMATION
  Report Type: Spontaneous
  Country: CA (occurrence: CA)
  Receive Date: 20240603
  Receipt Date: 20240726
  Transmission Date: 20241017
  Serious: Yes (Hospitalization)
  Sender: CELLTRION
  Company Number: CA-PFIZER INC-202400174492

PATIENT

DRUGS (7)
  1. INFLECTRA [Suspect]
     Active Substance: INFLIXIMAB-DYYB
     Indication: Crohn^s disease
     Dosage: 5 MG/KG, WEEKS 0,2,6 THEN EVERY 8 WEEKS
     Route: 042
     Dates: start: 20220318, end: 20220623
  2. INFLECTRA [Suspect]
     Active Substance: INFLIXIMAB-DYYB
     Dosage: 5 MG/KG, RE-INDUCTION WEEK 0,2,6 THEN EVERY 6 WEEKS
     Route: 042
     Dates: start: 20220726
  3. INFLECTRA [Suspect]
     Active Substance: INFLIXIMAB-DYYB
     Dosage: 5 MG/KG, RE-INDUCTION WEEK 0,2,6 THEN EVERY 6 WEEKS
     Route: 042
     Dates: start: 20240412
  4. INFLECTRA [Suspect]
     Active Substance: INFLIXIMAB-DYYB
     Dosage: 5 MG/KG, RE-INDUCTION WEEK 0,2,6 THEN EVERY 6 WEEKS
     Route: 042
     Dates: start: 20240524
  5. PENTASA [Concomitant]
     Active Substance: MESALAMINE
     Dosage: 1 DF, DOSAGE NOT AVAILABLE
     Route: 065
     Dates: start: 202112
  6. PREDNISONE [Concomitant]
     Active Substance: PREDNISONE
     Dosage: 1 DF, DOSAGE NOT AVAILABLE
     Route: 065
     Dates: start: 202202
  7. PURINETHOL [Concomitant]
     Active Substance: MERCAPTOPURINE
     Dosage: 1 DF, DOSAGE NOT AVAILABLE
     Route: 065
     Dates: start: 202202

REACTIONS (4)
  - Pyrexia [Recovered/Resolved]
  - Nausea [Recovered/Resolved]
  - Condition aggravated [Recovered/Resolved]
  - Stenosis [Recovered/Resolved]

NARRATIVE: CASE EVENT DATE: 20240101
